FAERS Safety Report 20516456 (Version 2)
Quarter: 2022Q1

REPORT INFORMATION
  Report Type: Spontaneous
  Country: JP (occurrence: JP)
  Receive Date: 20220225
  Receipt Date: 20220331
  Transmission Date: 20220423
  Serious: Yes (Hospitalization, Other)
  Sender: FDA-Public Use
  Company Number: JP-SA-2022SA057399

PATIENT
  Sex: Female

DRUGS (1)
  1. KEVZARA [Suspect]
     Active Substance: SARILUMAB
     Indication: Rheumatoid arthritis
     Dosage: UNK, QOW
     Route: 058

REACTIONS (2)
  - Cerebral infarction [Recovered/Resolved with Sequelae]
  - Movement disorder [Recovering/Resolving]

NARRATIVE: CASE EVENT DATE: 20220101
